FAERS Safety Report 13350362 (Version 2)
Quarter: 2017Q2

REPORT INFORMATION
  Report Type: Report from Study
  Country: GB (occurrence: GB)
  Receive Date: 20170320
  Receipt Date: 20170407
  Transmission Date: 20170830
  Serious: Yes (Other)
  Sender: FDA-Public Use
  Company Number: GB-JNJFOC-20170318719

PATIENT
  Age: 70 Year
  Sex: Male
  Weight: 114 kg

DRUGS (14)
  1. SODIUM ALGINATE [Concomitant]
     Active Substance: SODIUM ALGINATE
     Dosage: SODIUM ALGINATE AND POTASSIUM BICARBONATE SUGAR FREE PEPPERMINT, 500 MG + 100 MG/5 ML 5-10 ML
     Route: 048
  2. DERMOL [Concomitant]
     Active Substance: BENZALKONIUM CHLORIDE\CHLORHEXIDINE HYDROCHLORIDE\ISOPROPYL MYRISTATE\PARAFFIN
     Dosage: APPLY ON SKIN OR USE AS A SOAP SUBSTITUTE
     Route: 061
  3. RAMIPRIL. [Concomitant]
     Active Substance: RAMIPRIL
     Dosage: LAST ISSUED ON 13-MAR-2017
     Route: 065
  4. ALLOPURINOL. [Concomitant]
     Active Substance: ALLOPURINOL
     Dosage: LAST ISSUED ON 13-MAR-2017
     Route: 065
  5. COCODAMOL [Concomitant]
     Active Substance: ACETAMINOPHEN\CODEINE PHOSPHATE
     Dosage: LAST ISSUED ON 13-MAR-2017
     Route: 065
  6. OMEPRAZOLE. [Concomitant]
     Active Substance: OMEPRAZOLE
     Dosage: ONE TO BE TAKEN TWICE DAILY FOR 2 WEEKS THEN ONCE DAILY
  7. ASPRIN [Concomitant]
     Active Substance: ASPIRIN
     Dosage: LAST ISSUED ON 13-MAR-2017
     Route: 065
  8. GLYCERYL TRINITRATE [Concomitant]
     Active Substance: NITROGLYCERIN
     Dosage: SPRAY 1 OR 2 DOSES UNDER TOUNGE AS DIRECTED.??LAST ISSUED ON 13-MAR-2017
     Route: 060
  9. STELARA [Suspect]
     Active Substance: USTEKINUMAB
     Indication: PSORIASIS
     Route: 058
  10. BISOPROLOL [Concomitant]
     Active Substance: BISOPROLOL
     Dosage: LAST ISSUED DATE ON 13-MAR-2017
     Route: 065
  11. STELARA [Suspect]
     Active Substance: USTEKINUMAB
     Indication: PSORIASIS
     Route: 058
  12. METHOTREXATE. [Concomitant]
     Active Substance: METHOTREXATE
     Dosage: LAST ISSUED DATE ON 13-MAR-2017
     Route: 065
  13. FOLIC ACID. [Concomitant]
     Active Substance: FOLIC ACID
     Dosage: LAST ISSUED DATE ON 13-MAR-2017
     Route: 065
  14. ATORVASTATIN [Concomitant]
     Active Substance: ATORVASTATIN
     Dosage: LAST ISSUED DATE ON 13-MAR-2017
     Route: 065

REACTIONS (1)
  - Lower respiratory tract infection [Recovered/Resolved]

NARRATIVE: CASE EVENT DATE: 20170309
